FAERS Safety Report 10812362 (Version 2)
Quarter: 2015Q1

REPORT INFORMATION
  Report Type: Spontaneous
  Country: JP (occurrence: JP)
  Receive Date: 20150218
  Receipt Date: 20150226
  Transmission Date: 20150721
  Serious: Yes (Hospitalization, Other)
  Sender: FDA-Public Use
  Company Number: JP-BAUSCH-BL-2015-003010

PATIENT
  Age: 55 Year
  Sex: Male

DRUGS (2)
  1. FLUOROURACIL. [Suspect]
     Active Substance: FLUOROURACIL
     Indication: BONE CANCER
     Route: 065
  2. CISPLATIN. [Suspect]
     Active Substance: CISPLATIN
     Indication: BONE CANCER
     Route: 065

REACTIONS (6)
  - Brain oedema [Recovered/Resolved]
  - Renal failure [Unknown]
  - Posterior reversible encephalopathy syndrome [Recovered/Resolved]
  - Visual acuity reduced transiently [Recovered/Resolved]
  - Exophthalmos [Unknown]
  - Renal hypertension [Unknown]
